FAERS Safety Report 7062596 (Version 14)
Quarter: 2014Q1

REPORT INFORMATION
  Report Type: Spontaneous
  Country: US (occurrence: US)
  Receive Date: 20090724
  Receipt Date: 20140101
  Transmission Date: 20141002
  Serious: Yes (Death, Hospitalization, Other)
  Sender: FDA-Public Use
  Company Number: PHEH2009US07544

PATIENT
  Age: 64 Year
  Sex: Male

DRUGS (35)
  1. AREDIA [Suspect]
     Dosage: 90 MG, QMO
     Route: 042
  2. ZOMETA [Suspect]
     Dosage: 4 MG, QMO
     Route: 042
     Dates: end: 20070821
  3. EPINEPHRINE [Concomitant]
  4. LIDOCAINE [Concomitant]
  5. FENTANYL [Concomitant]
  6. MIDAZOLAM [Concomitant]
  7. LASIX [Concomitant]
  8. COMBIVENT                               /GFR/ [Concomitant]
  9. SPIRIVA ^BOEHRINGER INGELHEIM^ [Concomitant]
  10. DIGOXIN [Concomitant]
  11. DEXAMETHASONE [Concomitant]
  12. NEURONTIN [Concomitant]
  13. METOPROLOL [Concomitant]
  14. PREDNISONE [Concomitant]
  15. VALIUM [Concomitant]
  16. VIOXX [Concomitant]
  17. NEULASTA [Concomitant]
  18. NEUMEGA [Concomitant]
  19. NEUPOGEN [Concomitant]
  20. ANZEMET [Concomitant]
  21. VELCADE [Concomitant]
  22. CYTOXAN [Concomitant]
  23. THALIDOMIDE [Concomitant]
  24. KYTRIL [Concomitant]
  25. OXYCONTIN [Concomitant]
  26. LORTAB [Concomitant]
  27. MELPHALAN [Concomitant]
  28. FAMVIR                                  /NET/ [Concomitant]
  29. DECADRON                                /CAN/ [Concomitant]
  30. ADVAIR [Concomitant]
  31. DUONEB [Concomitant]
  32. MUCINEX [Concomitant]
  33. DARVOCET-N [Concomitant]
  34. ALBUTEROL [Concomitant]
  35. CHEMOTHERAPEUTICS [Concomitant]

REACTIONS (104)
  - Plasma cell myeloma [Fatal]
  - Paralysis [Unknown]
  - Osteonecrosis of jaw [Unknown]
  - General physical health deterioration [Unknown]
  - Pain [Unknown]
  - Anxiety [Unknown]
  - Anhedonia [Unknown]
  - Renal failure [Recovering/Resolving]
  - Hypoaesthesia [Unknown]
  - Fatigue [Unknown]
  - Dyspnoea [Unknown]
  - Back pain [Unknown]
  - Pulmonary hypertension [Unknown]
  - Right atrial dilatation [Unknown]
  - Bronchospasm [Unknown]
  - Cardiac enzymes increased [Unknown]
  - Radiation oesophagitis [Unknown]
  - Herpes zoster [Recovered/Resolved]
  - Plasmacytoma [Unknown]
  - Bone neoplasm [Unknown]
  - Leukopenia [Unknown]
  - Thrombocytopenia [Unknown]
  - Local swelling [Unknown]
  - Bursitis [Unknown]
  - Umbilical hernia [Unknown]
  - Thoracic vertebral fracture [Unknown]
  - Compression fracture [Unknown]
  - Claustrophobia [Unknown]
  - Arrhythmia supraventricular [Recovered/Resolved]
  - Lipoma [Unknown]
  - Diverticulum intestinal [Unknown]
  - Confusional state [Unknown]
  - Somnolence [Unknown]
  - Tremor [Unknown]
  - Asterixis [Unknown]
  - Chest pain [Unknown]
  - Pneumonia [Unknown]
  - Hypoxia [Unknown]
  - Respiratory failure [Unknown]
  - Chronic obstructive pulmonary disease [Unknown]
  - Atrial fibrillation [Unknown]
  - Hypoalbuminaemia [Unknown]
  - Pulmonary fibrosis [Unknown]
  - Haemorrhoids [Unknown]
  - Bronchitis [Unknown]
  - Cardiac failure congestive [Unknown]
  - Comminuted fracture [Unknown]
  - Humerus fracture [Unknown]
  - Pulmonary mass [Unknown]
  - Pleural effusion [Unknown]
  - Fibula fracture [Unknown]
  - Pancytopenia [Unknown]
  - Splenic infarction [Unknown]
  - Inguinal hernia [Unknown]
  - Atelectasis [Unknown]
  - Spinal osteoarthritis [Unknown]
  - Abdominal pain [Unknown]
  - Decubitus ulcer [Unknown]
  - Asthenia [Unknown]
  - Gait disturbance [Unknown]
  - Exposed bone in jaw [Unknown]
  - Hypercalcaemia [Unknown]
  - Osteomalacia [Unknown]
  - Hyperparathyroidism secondary [Unknown]
  - Iron deficiency anaemia [Unknown]
  - Hepatic function abnormal [Not Recovered/Not Resolved]
  - Arthralgia [Unknown]
  - Joint swelling [Unknown]
  - Nephropathy [Unknown]
  - Proteinuria [Unknown]
  - Constipation [Unknown]
  - Actinic keratosis [Unknown]
  - Intervertebral disc protrusion [Unknown]
  - Hypokalaemia [Unknown]
  - Rib fracture [Unknown]
  - Osteoporosis [Unknown]
  - Aortic arteriosclerosis [Unknown]
  - Sepsis [Unknown]
  - Ileus paralytic [Unknown]
  - Pneumothorax [Unknown]
  - Neutropenia [Unknown]
  - Mental status changes [Unknown]
  - Pathological fracture [Unknown]
  - Diabetes mellitus [Unknown]
  - Enterococcal infection [Unknown]
  - Urinary retention [Unknown]
  - Sleep apnoea syndrome [Unknown]
  - Abdominal distension [Unknown]
  - Immune system disorder [Unknown]
  - Immunodeficiency [Unknown]
  - Anaemia [Unknown]
  - Asthma [Unknown]
  - Bone cancer [Unknown]
  - Osteosclerosis [Unknown]
  - Kyphosis [Unknown]
  - Spinal deformity [Unknown]
  - Coronary artery disease [Unknown]
  - Large intestinal obstruction [Unknown]
  - Osteopenia [Unknown]
  - Exostosis [Unknown]
  - Device related infection [Unknown]
  - Fibrosis [Unknown]
  - Fall [Unknown]
  - Melanocytic naevus [Unknown]
